FAERS Safety Report 12672216 (Version 8)
Quarter: 2017Q2

REPORT INFORMATION
  Report Type: Spontaneous
  Country: US (occurrence: US)
  Receive Date: 20160822
  Receipt Date: 20170623
  Transmission Date: 20170830
  Serious: Yes (Death, Congenital Anomaly, Other)
  Sender: FDA-Public Use
  Company Number: PHHY2015US129714

PATIENT
  Sex: Female

DRUGS (4)
  1. ONDANSETRON HYDROCHLORIDE. [Suspect]
     Active Substance: ONDANSETRON HYDROCHLORIDE
     Indication: FOETAL EXPOSURE DURING PREGNANCY
     Dosage: MOTHER DOSE: 8 MG, UNK
     Route: 064
  2. ONDANSETRON HYDROCHLORIDE. [Suspect]
     Active Substance: ONDANSETRON HYDROCHLORIDE
     Indication: FOETAL EXPOSURE DURING PREGNANCY
     Dosage: MOTHER DOSE: 2 ML, Q6H
     Route: 064
  3. ZOFRAN [Suspect]
     Active Substance: ONDANSETRON HYDROCHLORIDE
     Indication: FOETAL EXPOSURE DURING PREGNANCY
     Dosage: MOTHER DOSE: 8 MG, UNK
     Route: 064
  4. ZOFRAN [Suspect]
     Active Substance: ONDANSETRON HYDROCHLORIDE
     Indication: FOETAL EXPOSURE DURING PREGNANCY
     Dosage: MOTHER DOSE: 1 DF, TID
     Route: 064

REACTIONS (60)
  - Cardiogenic shock [Fatal]
  - Heterotaxia [Unknown]
  - Left ventricle outflow tract obstruction [Unknown]
  - Neonatal respiratory distress syndrome [Unknown]
  - Hyperthermia malignant [Unknown]
  - Heart disease congenital [Unknown]
  - Hypertrophic cardiomyopathy [Unknown]
  - Acute respiratory failure [Unknown]
  - Low birth weight baby [Unknown]
  - Developmental delay [Unknown]
  - Respiratory acidosis [Unknown]
  - Death neonatal [Fatal]
  - Subarachnoid haemorrhage neonatal [Fatal]
  - Patent ductus arteriosus [Unknown]
  - Premature baby [Unknown]
  - Tracheomalacia [Unknown]
  - Convulsion neonatal [Unknown]
  - Protrusion tongue [Unknown]
  - Feeding intolerance [Unknown]
  - Hypochloraemia [Unknown]
  - Sinus tachycardia [Unknown]
  - Congenital aortic valve incompetence [Unknown]
  - Right ventricle outflow tract obstruction [Unknown]
  - Sinus node dysfunction [Unknown]
  - Haemorrhage intracranial [Unknown]
  - Cerebrovascular accident [Unknown]
  - Neonatal tachypnoea [Unknown]
  - Coagulopathy [Unknown]
  - Cognitive disorder [Unknown]
  - Sinus arrhythmia [Unknown]
  - Atrioventricular septal defect [Unknown]
  - Pseudocholinesterase deficiency [Unknown]
  - Foetal exposure during pregnancy [Unknown]
  - Abdominal compartment syndrome [Unknown]
  - Right ventricular hypertrophy [Unknown]
  - Pulmonary congestion [Unknown]
  - Cardiac failure [Unknown]
  - Atrioventricular block complete [Unknown]
  - Haemorrhage [Unknown]
  - Monoplegia [Unknown]
  - Right ventricular dilatation [Unknown]
  - Cardiac failure congestive [Unknown]
  - Respiratory failure [Unknown]
  - Hyponatraemia [Unknown]
  - Cardiomyopathy [Fatal]
  - Sepsis neonatal [Unknown]
  - Pulmonary oedema neonatal [Unknown]
  - Subdural haematoma [Unknown]
  - Ventricular hypertrophy [Unknown]
  - Ventricular failure [Unknown]
  - Diarrhoea neonatal [Unknown]
  - Aorta hypoplasia [Unknown]
  - Ascites [Unknown]
  - Atelectasis neonatal [Unknown]
  - Pericardial effusion [Unknown]
  - Chronic left ventricular failure [Unknown]
  - Aortic dilatation [Unknown]
  - Cardiac murmur [Unknown]
  - Sinus bradycardia [Unknown]
  - Cardiomegaly [Unknown]
